FAERS Safety Report 8578662-7 (Version None)
Quarter: 2012Q3

REPORT INFORMATION
  Report Type: 
  Country: None (occurrence: None)
  Receive Date: 20120808
  Receipt Date: 20120806
  Transmission Date: 20120928
  Serious: Yes (Other)
  Sender: FDA-Public Use
  Company Number: CA-TEVA-352188USA

PATIENT
  Sex: Female

DRUGS (10)
  1. ABATACEPT [Suspect]
     Route: 058
     Dates: start: 20090610
  2. METHOTREXATE [Suspect]
     Dosage: 2.8571 MILLIGRAM DAILY;
     Route: 048
     Dates: start: 20020901
  3. CLONAZEPAM [Concomitant]
     Dates: start: 20120117
  4. VITAMIN D [Concomitant]
     Dates: start: 20100915
  5. CELEBREX [Concomitant]
     Dates: start: 20100815
  6. CALCIUM CARBONATE [Concomitant]
     Dates: start: 20100915
  7. RISEDRONATE SODIUM [Concomitant]
     Dates: start: 20090524
  8. HYDROCHLOROTHIAZIDE [Concomitant]
     Dates: start: 20090218
  9. PANTOPRAZOLE SODIUM [Concomitant]
     Dates: start: 20090512
  10. ASPIRIN [Concomitant]
     Dates: start: 20111125

REACTIONS (1)
  - TRANSITIONAL CELL CARCINOMA [None]
